FAERS Safety Report 8104731-1 (Version None)
Quarter: 2012Q1

REPORT INFORMATION
  Report Type: 
  Country: None (occurrence: None)
  Receive Date: 20120130
  Receipt Date: 20120120
  Transmission Date: 20120608
  Serious: Yes (Other)
  Sender: FDA-Public Use
  Company Number: US-PFIZER INC-2012017231

PATIENT
  Sex: Female
  Weight: 101 kg

DRUGS (11)
  1. VICODIN [Concomitant]
     Dosage: UNK, AS NEEDED
  2. SOMAVERT [Suspect]
     Indication: ACROMEGALY
     Dosage: 10 MG, 1X/DAY
     Route: 058
     Dates: start: 20080101
  3. ZOCOR [Concomitant]
     Dosage: 40MG, DAILY
  4. SCHIFF MOVE FREE [Concomitant]
     Dosage: 1500MG, UNK
  5. PERCOCET [Concomitant]
     Dosage: UNK, AS NEEDED
  6. LISINOPRIL [Concomitant]
     Dosage: 40MG, DAILY
  7. MECLIZINE [Concomitant]
     Indication: EAR DISORDER
     Dosage: UNK, TWICE A DAY
  8. SOMAVERT [Suspect]
     Dosage: 20 MG, 2X/DAY
     Route: 058
  9. METOPROLOL [Concomitant]
     Dosage: 50MG, DAILY
  10. FISH OIL [Concomitant]
     Dosage: 1000MG, DAILY
  11. ACETYLSALICYLIC ACID [Concomitant]
     Dosage: UNK

REACTIONS (5)
  - DIABETES MELLITUS [None]
  - BLOOD GROWTH HORMONE INCREASED [None]
  - ARTHROPATHY [None]
  - NEPHROLITHIASIS [None]
  - BLOOD CREATINE INCREASED [None]
